FAERS Safety Report 7230632-7 (Version None)
Quarter: 2011Q1

REPORT INFORMATION
  Report Type: 
  Country: None (occurrence: None)
  Receive Date: 20110118
  Receipt Date: 20110112
  Transmission Date: 20110831
  Serious: Yes (Death, Other)
  Sender: FDA-Public Use
  Company Number: PHHY2011JP03063

PATIENT
  Age: 81 Year
  Sex: Male

DRUGS (4)
  1. METHOTREXATE [Concomitant]
     Indication: COLLAGEN DISORDER
     Dosage: 6 MG PER WEEK
  2. PREDNISOLONE [Concomitant]
     Indication: COLLAGEN DISORDER
     Dosage: 40 MG, QD
  3. PREDNISOLONE [Concomitant]
     Dosage: 15 MG, QD
  4. CYCLOSPORINE [Suspect]
     Indication: COLLAGEN DISORDER

REACTIONS (6)
  - WOUND COMPLICATION [None]
  - CHRONIC RESPIRATORY FAILURE [None]
  - PHAEHYPHOMYCOSIS [None]
  - ANAEMIA [None]
  - RASH [None]
  - BLOOD IMMUNOGLOBULIN G DECREASED [None]
